FAERS Safety Report 5473532-5 (Version None)
Quarter: 2007Q4

REPORT INFORMATION
  Report Type: 
  Country: None (occurrence: None)
  Receive Date: 20071001
  Receipt Date: 20031027
  Transmission Date: 20080405
  Serious: Yes (Other)
  Sender: FDA-Public Use
  Company Number: US-PFIZER INC-2003115163

PATIENT
  Sex: Male
  Weight: 89.8 kg

DRUGS (2)
  1. LIPITOR [Suspect]
     Indication: BLOOD CHOLESTEROL INCREASED
     Dosage: DAILY DOSE:10MG
     Route: 048
  2. DOXAZOSIN MESYLATE [Concomitant]
     Route: 048

REACTIONS (2)
  - CELLULITIS [None]
  - FATIGUE [None]
